FAERS Safety Report 9501162 (Version 1)
Quarter: 2013Q3

REPORT INFORMATION
  Report Type: Spontaneous
  Country: FR (occurrence: FR)
  Receive Date: 20130905
  Receipt Date: 20130905
  Transmission Date: 20140515
  Serious: Yes (Hospitalization)
  Sender: FDA-Public Use
  Company Number: FR-PFIZER INC-2013251640

PATIENT
  Age: 32 Year
  Sex: Female
  Weight: 41 kg

DRUGS (13)
  1. ANSATIPINE [Suspect]
     Indication: PERITONEAL TUBERCULOSIS
     Dosage: 150 MG, 1X/DAY
     Route: 048
     Dates: start: 20130322, end: 20130408
  2. ANSATIPINE [Suspect]
     Dosage: 150 MG, 1X/DAY
     Route: 048
     Dates: start: 2013
  3. RIMIFON [Suspect]
     Indication: TUBERCULOSIS
     Dosage: 150 MG, 1X/DAY
     Route: 048
     Dates: start: 20130322, end: 20130408
  4. RIMIFON [Suspect]
     Dosage: 150 MG, 1X/DAY
     Route: 048
     Dates: start: 20130415, end: 201304
  5. DEXAMBUTOL [Concomitant]
     Indication: PERITONEAL TUBERCULOSIS
     Dosage: 500 MG, 1X/DAY
     Route: 048
     Dates: start: 20130322, end: 20130408
  6. DEXAMBUTOL [Concomitant]
     Dosage: UNK
     Dates: start: 2013
  7. PIRILENE [Concomitant]
     Indication: PERITONEAL TUBERCULOSIS
     Dosage: 750 MG, 1X/DAY
     Route: 048
     Dates: start: 20130322, end: 20130408
  8. PIRILENE [Concomitant]
     Dosage: UNK
     Dates: start: 2013
  9. BACTRIM [Concomitant]
     Indication: PROPHYLAXIS
     Dosage: 1 DF, DAILY
     Dates: start: 20130322, end: 20130408
  10. BACTRIM [Concomitant]
     Dosage: UNK
     Dates: start: 2013
  11. TRUVADA [Concomitant]
     Indication: HIV INFECTION
     Dosage: 1 DF DAILY
     Dates: start: 20130327
  12. REYATAZ [Concomitant]
     Indication: HIV INFECTION
     Dosage: 300 MG, 1X/DAY
  13. NORVIR [Concomitant]
     Indication: HIV INFECTION
     Dosage: 100 MG DAILY
     Dates: start: 20130327

REACTIONS (5)
  - Toxic skin eruption [Recovered/Resolved]
  - Dermatitis exfoliative [Recovered/Resolved]
  - Rash [Recovered/Resolved]
  - Pruritus [Recovered/Resolved]
  - Pyrexia [Recovered/Resolved]
